FAERS Safety Report 6941810-6 (Version None)
Quarter: 2010Q3

REPORT INFORMATION
  Report Type: 
  Country: None (occurrence: None)
  Receive Date: 20100826
  Receipt Date: 20100816
  Transmission Date: 20110219
  Serious: Yes (Other)
  Sender: FDA-Public Use
  Company Number: US-PFIZER INC-2010103163

PATIENT
  Sex: Female

DRUGS (3)
  1. RELPAX [Suspect]
     Indication: MIGRAINE PROPHYLAXIS
     Dosage: 3 TO 4 TIMES MONTHLY
     Route: 048
     Dates: start: 20100101, end: 20100629
  2. IMITREX [Suspect]
     Indication: MIGRAINE PROPHYLAXIS
     Dosage: 3 TO 4 TIMES MONTHLY
     Route: 048
     Dates: start: 20100101, end: 20100629
  3. SYNTHROID [Concomitant]
     Dosage: 0.125 MG, UNK

REACTIONS (1)
  - FATIGUE [None]
